FAERS Safety Report 4653047-4 (Version None)
Quarter: 2005Q2

REPORT INFORMATION
  Report Type: 
  Country: None (occurrence: None)
  Receive Date: 20050505
  Receipt Date: 20050502
  Transmission Date: 20051028
  Serious: Yes (Life-Threatening, Disabling)
  Sender: FDA-Public Use
  Company Number: US-MERCK-0505USA00303

PATIENT
  Age: 73 Year
  Sex: Female

DRUGS (2)
  1. FOSAMAX [Suspect]
     Indication: OSTEOPOROSIS
     Route: 048
     Dates: start: 20041222, end: 20050420
  2. SYNTHROID [Concomitant]
     Route: 065

REACTIONS (3)
  - DYSPNOEA [None]
  - OCULAR HYPERAEMIA [None]
  - URTICARIA [None]
